FAERS Safety Report 12855877 (Version 1)
Quarter: 2016Q4

REPORT INFORMATION
  Report Type: Spontaneous
  Country: DK (occurrence: None)
  Receive Date: 20161014
  Receipt Date: 20161014
  Transmission Date: 20170207
  Serious: Yes (Life-Threatening, Hospitalization)
  Sender: FDA-Public Use
  Company Number: DK2016K3197LIT

PATIENT
  Age: 60 Year
  Sex: Female

DRUGS (1)
  1. ENALAPRIL GENERIC (ENALAPRIL) UNKNOWN [Suspect]
     Active Substance: ENALAPRIL
     Indication: ESSENTIAL HYPERTENSION
     Route: 048

REACTIONS (3)
  - Bradycardia [None]
  - Angioedema [None]
  - Hypoxia [None]
